FAERS Safety Report 23808927 (Version 1)
Quarter: 2024Q2

REPORT INFORMATION
  Report Type: Spontaneous
  Country: US (occurrence: None)
  Receive Date: 20240501
  Receipt Date: 20240501
  Transmission Date: 20240716
  Serious: Yes (Other)
  Sender: FDA-Public Use
  Company Number: None

PATIENT
  Age: 61 Year
  Sex: Female

DRUGS (1)
  1. MAVYRET [Suspect]
     Active Substance: GLECAPREVIR\PIBRENTASVIR
     Indication: Chronic hepatitis
     Dosage: OTHER QUANTITY : 300-120MG (3 TAB);?FREQUENCY : DAILY;?
     Route: 048
     Dates: start: 20240501, end: 20240501

REACTIONS (5)
  - Swelling face [None]
  - Lip swelling [None]
  - Abdominal distension [None]
  - Dyspepsia [None]
  - Dyspnoea [None]

NARRATIVE: CASE EVENT DATE: 20240501
